FAERS Safety Report 19833131 (Version 1)
Quarter: 2021Q3

REPORT INFORMATION
  Report Type: Spontaneous
  Country: US (occurrence: US)
  Receive Date: 20210915
  Receipt Date: 20210915
  Transmission Date: 20211014
  Serious: Yes (Hospitalization)
  Sender: FDA-Public Use
  Company Number: US-MYLANLABS-2021M1060293

PATIENT
  Age: 68 Year
  Sex: Female

DRUGS (2)
  1. HYDRALAZINE [Suspect]
     Active Substance: HYDRALAZINE HYDROCHLORIDE
     Dosage: 50 MILLIGRAM, TID, THREE TIMES PER DAY
     Route: 065
  2. HYDRALAZINE [Suspect]
     Active Substance: HYDRALAZINE HYDROCHLORIDE
     Indication: HYPERTENSION
     Dosage: INITIAL DOSE NOT STATED
     Route: 065

REACTIONS (2)
  - Weight decreased [Unknown]
  - Anti-neutrophil cytoplasmic antibody positive vasculitis [Unknown]
